FAERS Safety Report 17228284 (Version 2)
Quarter: 2020Q1

REPORT INFORMATION
  Report Type: Spontaneous
  Country: US (occurrence: US)
  Receive Date: 20200103
  Receipt Date: 20200210
  Transmission Date: 20200409
  Serious: Yes (Hospitalization, Other)
  Sender: FDA-Public Use
  Company Number: US-ELI_LILLY_AND_COMPANY-US201912012384

PATIENT
  Age: 77 Year
  Sex: Female

DRUGS (15)
  1. HUMULIN R [Suspect]
     Active Substance: INSULIN HUMAN
     Dosage: 5 U, DAILY AT NOON
     Route: 065
     Dates: start: 2015
  2. HUMULIN N [Suspect]
     Active Substance: INSULIN HUMAN
     Dosage: 12 U, EACH MORNING
     Route: 065
     Dates: start: 2016
  3. HUMULIN N [Suspect]
     Active Substance: INSULIN HUMAN
     Indication: PRODUCT USED FOR UNKNOWN INDICATION
     Dosage: 20 U, BID
     Route: 065
     Dates: start: 2015
  4. HUMULIN N [Suspect]
     Active Substance: INSULIN HUMAN
     Dosage: UNK UNK, UNKNOWN
     Route: 065
  5. HUMULIN R [Suspect]
     Active Substance: INSULIN HUMAN
     Dosage: 10 U, EACH EVENING
     Route: 065
     Dates: start: 2015
  6. HUMULIN R [Suspect]
     Active Substance: INSULIN HUMAN
     Dosage: 10 U, EACH EVENING
     Route: 065
  7. HUMULIN R [Suspect]
     Active Substance: INSULIN HUMAN
     Dosage: UNK UNK, UNKNOWN
     Route: 065
  8. HUMULIN R [Suspect]
     Active Substance: INSULIN HUMAN
     Dosage: UNK UNK, UNKNOWN
     Route: 065
  9. HUMULIN R [Suspect]
     Active Substance: INSULIN HUMAN
     Indication: PRODUCT USED FOR UNKNOWN INDICATION
     Dosage: 10 U, EACH MORNING
     Route: 065
     Dates: start: 2015
  10. HUMULIN N [Suspect]
     Active Substance: INSULIN HUMAN
     Dosage: 12 U, EACH EVENING
     Route: 065
     Dates: start: 2016
  11. HUMULIN N [Suspect]
     Active Substance: INSULIN HUMAN
     Dosage: 20 U, BID
     Route: 065
  12. HUMULIN R [Suspect]
     Active Substance: INSULIN HUMAN
     Dosage: 10 U, EACH MORNING
     Route: 065
  13. HUMULIN R [Suspect]
     Active Substance: INSULIN HUMAN
     Dosage: 5 U, DAILY AT NOON
     Route: 065
  14. HUMULIN N [Suspect]
     Active Substance: INSULIN HUMAN
     Dosage: 10 U, DAILY AT NOON
     Route: 065
     Dates: start: 2016
  15. DEXAMINE [DEXAMETHASONE] [Suspect]
     Active Substance: DEXAMETHASONE
     Indication: FATIGUE
     Dosage: UNK UNK, UNKNOWN
     Route: 065

REACTIONS (13)
  - Meniscus injury [Unknown]
  - Fall [Unknown]
  - Diabetes mellitus [Unknown]
  - Arthritis [Unknown]
  - Limb discomfort [Unknown]
  - Parkinson^s disease [Unknown]
  - Memory impairment [Unknown]
  - Thyroid disorder [Unknown]
  - Fatigue [Unknown]
  - Blood glucose increased [Unknown]
  - Lung disorder [Unknown]
  - Asthma [Unknown]
  - Arthropathy [Unknown]
